FAERS Safety Report 12391695 (Version 9)
Quarter: 2020Q4

REPORT INFORMATION
  Report Type: Report from Study
  Country: CA (occurrence: CA)
  Receive Date: 20160522
  Receipt Date: 20201221
  Transmission Date: 20210113
  Serious: Yes (Hospitalization)
  Sender: FDA-Public Use
  Company Number: PHHY2014CA034464

PATIENT
  Age: 63 Year
  Sex: Male

DRUGS (6)
  1. SANDOSTATIN [Suspect]
     Active Substance: OCTREOTIDE ACETATE
  2. SANDOSTATIN LAR DEPOT [Suspect]
     Active Substance: OCTREOTIDE ACETATE
     Indication: NEUROENDOCRINE CARCINOMA
     Dosage: 30 MG, QMO (EVERY 4 WEEKS)
     Route: 030
     Dates: start: 20140327
  3. SANDOSTATIN LAR DEPOT [Suspect]
     Active Substance: OCTREOTIDE ACETATE
  4. SANDOSTATIN [Suspect]
     Active Substance: OCTREOTIDE ACETATE
     Indication: NEUROENDOCRINE CARCINOMA
     Dosage: 100 UG, ONCE/SINGLE
     Route: 058
     Dates: start: 20140314, end: 20140314
  5. SANDOSTATIN LAR DEPOT [Suspect]
     Active Substance: OCTREOTIDE ACETATE
     Dosage: 60 MG, QMO (EVERY 4 WEEKS)
     Route: 030
     Dates: start: 20140327
  6. SANDOSTATIN [Suspect]
     Active Substance: OCTREOTIDE ACETATE

REACTIONS (15)
  - Mood altered [Unknown]
  - Pruritus [Recovered/Resolved]
  - Injection site pain [Unknown]
  - Hunger [Unknown]
  - Body temperature decreased [Unknown]
  - Infection [Unknown]
  - Blood pressure increased [Unknown]
  - Eating disorder [Unknown]
  - Pain [Unknown]
  - Pruritus [Recovered/Resolved]
  - Product use issue [Unknown]
  - Ascites [Unknown]
  - Abdominal pain upper [Unknown]
  - Stomatitis [Recovered/Resolved]
  - Product dose omission issue [Unknown]

NARRATIVE: CASE EVENT DATE: 20140314
